FAERS Safety Report 6018737-X (Version None)
Quarter: 2008Q4

REPORT INFORMATION
  Report Type: 
  Country: None (occurrence: None)
  Receive Date: 20081223
  Receipt Date: 20081208
  Transmission Date: 20090506
  Serious: Yes (Death, Other)
  Sender: FDA-Public Use
  Company Number: US-GENENTECH-274345

PATIENT
  Age: 32 Year
  Sex: Male

DRUGS (6)
  1. RITUXAN [Suspect]
     Indication: WEGENER'S GRANULOMATOSIS
     Dosage: 375 MG/M2, 1/WEEK
     Route: 042
  2. MYCOPHENOLATE MOFETIL [Suspect]
     Indication: WEGENER'S GRANULOMATOSIS
  3. AZATHIOPRINE [Suspect]
     Indication: WEGENER'S GRANULOMATOSIS
  4. METHOTREXATE [Suspect]
     Indication: WEGENER'S GRANULOMATOSIS
  5. ETANERCEPT [Suspect]
     Indication: WEGENER'S GRANULOMATOSIS
  6. INFLIXIMAB [Suspect]
     Indication: WEGENER'S GRANULOMATOSIS

REACTIONS (2)
  - ADENOVIRUS INFECTION [None]
  - WEGENER'S GRANULOMATOSIS [None]
